FAERS Safety Report 9318960 (Version 1)
Quarter: 2013Q2

REPORT INFORMATION
  Report Type: Spontaneous
  Country: US (occurrence: US)
  Receive Date: 20130530
  Receipt Date: 20130530
  Transmission Date: 20140414
  Serious: No
  Sender: FDA-Public Use
  Company Number: US-NOVEN-13US005956

PATIENT
  Age: 7 Year
  Sex: Male
  Weight: 23.13 kg

DRUGS (3)
  1. DAYTRANA [Suspect]
     Indication: ATTENTION DEFICIT/HYPERACTIVITY DISORDER
     Dosage: 10 MG, UNK
     Route: 062
  2. DAYTRANA [Suspect]
     Dosage: 15 MG, UNK
     Route: 062
  3. INTUNIV [Concomitant]
     Indication: PRODUCT USED FOR UNKNOWN INDICATION

REACTIONS (3)
  - Disturbance in social behaviour [Not Recovered/Not Resolved]
  - Abdominal pain upper [Unknown]
  - Off label use [Not Recovered/Not Resolved]
